FAERS Safety Report 9494152 (Version 1)
Quarter: 2013Q3

REPORT INFORMATION
  Report Type: Spontaneous
  Country: CA (occurrence: CA)
  Receive Date: 20130903
  Receipt Date: 20130903
  Transmission Date: 20140515
  Serious: Yes (Other)
  Sender: FDA-Public Use
  Company Number: PHHY2013CA095470

PATIENT
  Sex: Female

DRUGS (1)
  1. ACLASTA [Suspect]
     Indication: OSTEOPOROSIS
     Dosage: UNK UKN, UNK
     Route: 042
     Dates: start: 20130827

REACTIONS (17)
  - Spinal disorder [Unknown]
  - Mobility decreased [Unknown]
  - Full blood count decreased [Unknown]
  - Chest pain [Not Recovered/Not Resolved]
  - Dehydration [Unknown]
  - Dyspnoea [Unknown]
  - Back pain [Unknown]
  - Musculoskeletal chest pain [Not Recovered/Not Resolved]
  - Arthralgia [Unknown]
  - Musculoskeletal pain [Unknown]
  - Neck pain [Unknown]
  - Pain in jaw [Unknown]
  - Diarrhoea [Unknown]
  - Vomiting [Unknown]
  - Pyrexia [Unknown]
  - Asthenia [Unknown]
  - Headache [Unknown]
